FAERS Safety Report 5819440-9 (Version None)
Quarter: 2008Q3

REPORT INFORMATION
  Report Type: 
  Country: None (occurrence: None)
  Receive Date: 20080718
  Receipt Date: 20080708
  Transmission Date: 20090109
  Serious: Yes (Death)
  Sender: FDA-Public Use
  Company Number: 002145

PATIENT
  Age: 67 Year
  Sex: Male

DRUGS (4)
  1. BUSULFEX [Suspect]
     Indication: STEM CELL TRANSPLANT
     Dosage: 30 ML, INTRAVENOUS
     Route: 042
     Dates: start: 20070217, end: 20070218
  2. ATG        (ANTILYMPHOCYTE IMMUNOGLOBULIN (HORSE)) [Concomitant]
  3. MELPHALAN       (MELPHALAN) [Concomitant]
  4. TACROLIMUS [Concomitant]

REACTIONS (12)
  - ANOREXIA [None]
  - CHEST DISCOMFORT [None]
  - CONSTIPATION [None]
  - CONVULSION [None]
  - DIARRHOEA [None]
  - ENCEPHALITIS [None]
  - ERYTHEMA [None]
  - MALAISE [None]
  - OEDEMA [None]
  - PYREXIA [None]
  - STEM CELL TRANSPLANT [None]
  - STOMATITIS [None]
